FAERS Safety Report 8699315 (Version 4)
Quarter: 2013Q1

REPORT INFORMATION
  Report Type: Spontaneous
  Country: US (occurrence: US)
  Receive Date: 20120802
  Receipt Date: 20130207
  Transmission Date: 20140127
  Serious: Yes (Other)
  Sender: FDA-Public Use
  Company Number: US-ASTRAZENECA-2012SE53031

PATIENT
  Age: 80 Year
  Sex: Female

DRUGS (3)
  1. CRESTOR [Suspect]
     Route: 048
  2. DIOVAN [Concomitant]
     Indication: HYPERTENSION
  3. LIPITOR [Concomitant]

REACTIONS (4)
  - Abasia [Unknown]
  - Cataract [Unknown]
  - Malaise [Unknown]
  - Back disorder [Unknown]
